FAERS Safety Report 7440581-7 (Version None)
Quarter: 2011Q2

REPORT INFORMATION
  Report Type: 
  Country: None (occurrence: None)
  Receive Date: 20110427
  Receipt Date: 20110419
  Transmission Date: 20111010
  Serious: Yes (Death)
  Sender: FDA-Public Use
  Company Number: B0692990A

PATIENT
  Sex: Female

DRUGS (18)
  1. MAXOLON [Concomitant]
  2. DEXAMETHASONE [Concomitant]
  3. XELODA [Suspect]
     Dosage: 1650MG PER DAY
     Route: 048
     Dates: start: 20100812, end: 20101111
  4. LACTULOSE [Concomitant]
     Dosage: 10ML TWICE PER DAY
  5. NOZINAN [Concomitant]
  6. ELTROXIN [Concomitant]
     Dosage: 25MG IN THE MORNING
  7. OXYCODONE HCL [Concomitant]
  8. MIDAZOLAM [Concomitant]
     Dosage: 10MG PER DAY
  9. METHOTRIMEPRAZINE [Concomitant]
     Dosage: 6MG AT NIGHT
  10. ORAMORPH SR [Concomitant]
     Dosage: 2.5MG AS REQUIRED
  11. CYCLIZINE [Concomitant]
     Dosage: 150MG PER DAY
     Route: 058
  12. ZOTON [Concomitant]
  13. TYVERB [Suspect]
     Dosage: 1250MG PER DAY
     Route: 048
     Dates: start: 20100928, end: 20101111
  14. SENOKOT [Concomitant]
  15. PARACETAMOL [Concomitant]
  16. LORAZEPAM [Concomitant]
     Dosage: 1MG AS REQUIRED
     Dates: start: 20101230
  17. DIFLUCAN [Concomitant]
     Indication: ORAL CANDIDIASIS
     Dates: start: 20101230
  18. PREGABALIN [Concomitant]
     Dosage: 25MG TWICE PER DAY
     Dates: end: 20101129

REACTIONS (4)
  - DISEASE PROGRESSION [None]
  - METASTASES TO LIVER [None]
  - METASTASES TO BONE [None]
  - BACK PAIN [None]
